FAERS Safety Report 17011587 (Version 1)
Quarter: 2019Q4

REPORT INFORMATION
  Report Type: Report from Study
  Country: BR (occurrence: BR)
  Receive Date: 20191108
  Receipt Date: 20191108
  Transmission Date: 20200122
  Serious: Yes (Other)
  Sender: FDA-Public Use
  Company Number: BR-JNJFOC-20191101791

PATIENT
  Age: 14 Year
  Sex: Female

DRUGS (3)
  1. AZATHIOPRINE. [Concomitant]
     Active Substance: AZATHIOPRINE
  2. MESALAZINE [Concomitant]
     Active Substance: MESALAMINE
     Route: 065
  3. BIO-MANGUINHOS INFLIXIMABE [Suspect]
     Active Substance: INFLIXIMAB
     Indication: CROHN^S DISEASE
     Dosage: 2 VIALS, WEEK 0, 2 AND 6
     Route: 042
     Dates: start: 20190916

REACTIONS (9)
  - Oropharyngeal pain [Not Recovered/Not Resolved]
  - Laryngeal oedema [Recovered/Resolved]
  - Cough [Not Recovered/Not Resolved]
  - Flushing [Recovered/Resolved]
  - Apnoea [Recovered/Resolved]
  - Infusion related reaction [Unknown]
  - Nasopharyngitis [Not Recovered/Not Resolved]
  - Cyanosis [Recovered/Resolved]
  - Aphasia [Recovered/Resolved]

NARRATIVE: CASE EVENT DATE: 20190930
